FAERS Safety Report 9675107 (Version 1)
Quarter: 2013Q4

REPORT INFORMATION
  Report Type: Spontaneous
  Country: US (occurrence: None)
  Receive Date: 20131106
  Receipt Date: 20131106
  Transmission Date: 20140711
  Serious: No
  Sender: FDA-Public Use
  Company Number: None

PATIENT
  Age: 75 Year
  Sex: Female
  Weight: 68.04 kg

DRUGS (4)
  1. LATANOPROST [Suspect]
     Indication: GLAUCOMA
     Dosage: 125 UG/2.5 ML?1 DROP?ONCE A DAY AT BEDTIME?DEEP IN EYE.
     Dates: start: 20130429
  2. AMILODEPINE [Concomitant]
  3. VIT D [Concomitant]
  4. IRON [Concomitant]

REACTIONS (6)
  - Instillation site pruritus [None]
  - Instillation site pain [None]
  - Foreign body sensation in eyes [None]
  - Instillation site erythema [None]
  - Instillation site irritation [None]
  - No therapeutic response [None]
